FAERS Safety Report 4923796-9 (Version None)
Quarter: 2006Q1

REPORT INFORMATION
  Report Type: 
  Country: None (occurrence: None)
  Receive Date: 20060224
  Receipt Date: 20060224
  Transmission Date: 20060701
  Serious: Yes (Life-Threatening, Hospitalization)
  Sender: FDA-Public Use
  Company Number: None

PATIENT
  Age: 36 Year
  Sex: Female
  Weight: 79.3795 kg

DRUGS (2)
  1. ORTHO EVRA [Suspect]
     Indication: CONTRACEPTION
     Dosage: 1 PATCH PER WEEK TRANSDERMAL
     Route: 062
     Dates: start: 20050214, end: 20050310
  2. ORTHO EVRA [Suspect]
     Indication: CONTRACEPTION
     Dosage: 1 PATCH PER WEEK TRANSDERMAL
     Route: 062
     Dates: start: 20050505, end: 20050808

REACTIONS (7)
  - BACK PAIN [None]
  - DIZZINESS [None]
  - HEADACHE [None]
  - HYPOAESTHESIA [None]
  - PARAESTHESIA [None]
  - SUBDURAL HAEMATOMA [None]
  - THROMBOSIS [None]
